FAERS Safety Report 12451232 (Version 1)
Quarter: 2016Q2

REPORT INFORMATION
  Report Type: Spontaneous
  Country: IT (occurrence: IT)
  Receive Date: 20160609
  Receipt Date: 20160609
  Transmission Date: 20160815
  Serious: Yes (Hospitalization)
  Sender: FDA-Public Use
  Company Number: IT-TEVA-666278ACC

PATIENT
  Age: 70 Year
  Sex: Male
  Weight: 48 kg

DRUGS (2)
  1. CARBOPLATINO TEVA - TEVA PHARMA B.V. [Suspect]
     Active Substance: CARBOPLATIN
     Indication: LUNG NEOPLASM MALIGNANT
     Dosage: 350 MG CYCLICAL
     Route: 042
     Dates: start: 20160419, end: 20160419
  2. PACLITAXEL TEVA - TEVA ITALIA S.R.L. [Suspect]
     Active Substance: PACLITAXEL
     Indication: LUNG NEOPLASM MALIGNANT
     Dosage: 270 MG CYCLICAL
     Route: 042
     Dates: start: 20160419, end: 20160419

REACTIONS (3)
  - Drug interaction [Recovered/Resolved]
  - Vomiting [Recovered/Resolved]
  - Gastritis [Recovered/Resolved]

NARRATIVE: CASE EVENT DATE: 20160420
